FAERS Safety Report 9853901 (Version 1)
Quarter: 2014Q1

REPORT INFORMATION
  Report Type: Spontaneous
  Country: US (occurrence: US)
  Receive Date: 20140129
  Receipt Date: 20140129
  Transmission Date: 20141002
  Serious: Yes (Hospitalization, Other)
  Sender: FDA-Public Use
  Company Number: US-ELI_LILLY_AND_COMPANY-US201401007573

PATIENT
  Sex: Female

DRUGS (9)
  1. HUMALOG LISPRO [Suspect]
     Indication: TYPE 1 DIABETES MELLITUS
     Dosage: UNK
     Route: 058
     Dates: start: 1998
  2. CYMBALTA [Concomitant]
     Dosage: UNK
     Dates: start: 2004
  3. COZAAR [Concomitant]
  4. VITAMIN D [Concomitant]
  5. CALCIUM [Concomitant]
     Dosage: 1200 MG, UNK
  6. NORVASC [Concomitant]
  7. ZOCOR [Concomitant]
  8. NORCO [Concomitant]
  9. FORTEO [Concomitant]

REACTIONS (7)
  - Nephrolithiasis [Unknown]
  - Glaucoma [Unknown]
  - Lower limb fracture [Unknown]
  - Stress fracture [Unknown]
  - Medial tibial stress syndrome [Unknown]
  - Impaired healing [Unknown]
  - Nephrolithiasis [Unknown]
